FAERS Safety Report 15686699 (Version 2)
Quarter: 2018Q4

REPORT INFORMATION
  Report Type: Spontaneous
  Country: US (occurrence: US)
  Receive Date: 20181204
  Receipt Date: 20181228
  Transmission Date: 20190205
  Serious: Yes (Other)
  Sender: FDA-Public Use
  Company Number: US-VIFOR (INTERNATIONAL) INC.-VIT-2018-11703

PATIENT
  Sex: Female

DRUGS (8)
  1. VELPHORO [Concomitant]
     Active Substance: FERRIC OXYHYDROXIDE
  2. DORZOLAMIDE HCL [Concomitant]
     Active Substance: DORZOLAMIDE HYDROCHLORIDE
  3. LUMIGAN [Concomitant]
     Active Substance: BIMATOPROST
  4. SENSIPAR [Concomitant]
     Active Substance: CINACALCET HYDROCHLORIDE
  5. VELTASSA [Suspect]
     Active Substance: PATIROMER
     Indication: HYPERKALAEMIA
     Route: 048
     Dates: start: 20180814, end: 2018
  6. RENVELA [Concomitant]
     Active Substance: SEVELAMER CARBONATE
  7. TRAMADOL HCL [Concomitant]
     Active Substance: TRAMADOL HYDROCHLORIDE
  8. CYCLOBENZAPRINE HCL [Concomitant]
     Active Substance: CYCLOBENZAPRINE HYDROCHLORIDE

REACTIONS (2)
  - Unevaluable event [Unknown]
  - Dialysis [Unknown]

NARRATIVE: CASE EVENT DATE: 2018
